FAERS Safety Report 6700075-0 (Version None)
Quarter: 2010Q2

REPORT INFORMATION
  Report Type: 
  Country: None (occurrence: None)
  Receive Date: 20100423
  Receipt Date: 20090803
  Transmission Date: 20101027
  Serious: Yes (Other)
  Sender: FDA-Public Use
  Company Number: 2009237155

PATIENT
  Age: 20 Year
  Sex: Male
  Weight: 104 kg

DRUGS (3)
  1. GENOTROPIN [Suspect]
     Indication: PRADER-WILLI SYNDROME
     Dosage: 0.4 MG, 1X/DAY
  2. DEPAKOTE [Concomitant]
  3. PROZAC [Concomitant]

REACTIONS (1)
  - SCOLIOSIS [None]
